FAERS Safety Report 18862112 (Version 1)
Quarter: 2021Q1

REPORT INFORMATION
  Report Type: Spontaneous
  Country: US (occurrence: US)
  Receive Date: 20210209
  Receipt Date: 20210209
  Transmission Date: 20210420
  Serious: No
  Sender: FDA-Public Use
  Company Number: US-SA-2021SA037270

PATIENT
  Sex: Female

DRUGS (1)
  1. DUPIXENT [Suspect]
     Active Substance: DUPILUMAB
     Indication: DERMATITIS
     Dosage: 300 MG, QOW
     Route: 058
     Dates: start: 20190703

REACTIONS (6)
  - Skin exfoliation [Unknown]
  - Rash macular [Unknown]
  - Erythema [Unknown]
  - Skin swelling [Unknown]
  - Dry skin [Unknown]
  - Pruritus [Unknown]
